FAERS Safety Report 8344657-1 (Version None)
Quarter: 2012Q2

REPORT INFORMATION
  Report Type: 
  Country: None (occurrence: None)
  Receive Date: 20120508
  Receipt Date: 20120501
  Transmission Date: 20120825
  Serious: Yes (Hospitalization)
  Sender: FDA-Public Use
  Company Number: GB-ROCHE-1065604

PATIENT
  Sex: Male
  Weight: 88.8 kg

DRUGS (2)
  1. RANIBIZUMAB [Suspect]
     Indication: DIABETIC RETINAL OEDEMA
     Route: 050
     Dates: start: 20110408, end: 20110408
  2. RANIBIZUMAB [Suspect]
     Dates: start: 20120210, end: 20120210

REACTIONS (1)
  - BENIGN SALIVARY GLAND NEOPLASM [None]
